FAERS Safety Report 18348041 (Version 1)
Quarter: 2020Q4

REPORT INFORMATION
  Report Type: Spontaneous
  Country: FR (occurrence: FR)
  Receive Date: 20201006
  Receipt Date: 20201006
  Transmission Date: 20210114
  Serious: Yes (Death, Hospitalization)
  Sender: FDA-Public Use
  Company Number: FR-ALVOGEN-2020-ALVOGEN-114781

PATIENT
  Age: 4 Decade
  Sex: Male

DRUGS (2)
  1. OXACILLIN [Suspect]
     Active Substance: OXACILLIN SODIUM
     Indication: PNEUMONIA STAPHYLOCOCCAL
     Dates: start: 202003
  2. CLINDAMYCIN. [Suspect]
     Active Substance: CLINDAMYCIN
     Indication: PNEUMONIA STAPHYLOCOCCAL
     Dates: start: 202003

REACTIONS (1)
  - Drug ineffective [Fatal]
